FAERS Safety Report 25046371 (Version 1)
Quarter: 2025Q1

REPORT INFORMATION
  Report Type: Report from Study
  Country: US (occurrence: US)
  Receive Date: 20250306
  Receipt Date: 20250306
  Transmission Date: 20250409
  Serious: Yes (Other)
  Sender: PFIZER
  Company Number: US-PFIZER INC-PV202500026044

PATIENT
  Age: 20 Year
  Sex: Female

DRUGS (3)
  1. DOXYCYCLINE HYCLATE [Suspect]
     Active Substance: DOXYCYCLINE HYCLATE
     Route: 045
  2. OGSIVEO [Suspect]
     Active Substance: NIROGACESTAT HYDROBROMIDE
     Dosage: 150 MG, 2X/DAY
     Dates: start: 20250112
  3. FLUTICASONE [Suspect]
     Active Substance: FLUTICASONE
     Indication: Sinusitis

REACTIONS (17)
  - Sinusitis [Not Recovered/Not Resolved]
  - Stomatitis [Not Recovered/Not Resolved]
  - Fatigue [Not Recovered/Not Resolved]
  - Rash pruritic [Not Recovered/Not Resolved]
  - Diarrhoea [Recovered/Resolved]
  - Heavy menstrual bleeding [Not Recovered/Not Resolved]
  - Hot flush [Unknown]
  - Hangnail [Unknown]
  - Increased viscosity of upper respiratory secretion [Unknown]
  - Epistaxis [Recovered/Resolved]
  - Faeces pale [Unknown]
  - Abdominal distension [Unknown]
  - Abdominal discomfort [Unknown]
  - Nervousness [Unknown]
  - Impaired healing [Unknown]
  - Sinus headache [Unknown]
  - Off label use [Unknown]

NARRATIVE: CASE EVENT DATE: 20250121
